FAERS Safety Report 5711042-8 (Version None)
Quarter: 2008Q2

REPORT INFORMATION
  Report Type: 
  Country: None (occurrence: None)
  Receive Date: 20080421
  Receipt Date: 20080410
  Transmission Date: 20081010
  Serious: Yes (Hospitalization)
  Sender: FDA-Public Use
  Company Number: JP-JNJFOC-20070405986

PATIENT
  Sex: Female
  Weight: 53 kg

DRUGS (43)
  1. REMICADE [Suspect]
     Route: 042
  2. REMICADE [Suspect]
     Route: 042
  3. REMICADE [Suspect]
     Route: 042
  4. REMICADE [Suspect]
     Route: 042
  5. REMICADE [Suspect]
     Route: 042
  6. REMICADE [Suspect]
     Route: 042
  7. REMICADE [Suspect]
     Route: 042
  8. REMICADE [Suspect]
     Route: 042
  9. REMICADE [Suspect]
     Route: 042
  10. REMICADE [Suspect]
     Route: 042
  11. REMICADE [Suspect]
     Route: 042
  12. REMICADE [Suspect]
     Route: 042
  13. REMICADE [Suspect]
     Route: 042
  14. REMICADE [Suspect]
     Indication: RHEUMATOID ARTHRITIS
     Route: 042
  15. RHEUMATREX [Suspect]
     Indication: RHEUMATOID ARTHRITIS
     Route: 048
  16. PREDNISOLONE [Suspect]
     Indication: RHEUMATOID ARTHRITIS
     Route: 048
  17. PREDNISOLONE [Concomitant]
  18. PREDNISOLONE [Concomitant]
  19. PREDNISOLONE [Concomitant]
  20. ANTIHISTAMINES [Concomitant]
     Route: 065
  21. ANTIHISTAMINES [Concomitant]
     Route: 065
  22. ANTIHISTAMINES [Concomitant]
     Route: 065
  23. ANTIHISTAMINES [Concomitant]
     Route: 065
  24. ANTIHISTAMINES [Concomitant]
     Route: 065
  25. ANTIHISTAMINES [Concomitant]
     Route: 065
  26. ANTIHISTAMINES [Concomitant]
     Route: 065
  27. ANTIHISTAMINES [Concomitant]
     Route: 065
  28. ANTIHISTAMINES [Concomitant]
     Route: 065
  29. ANTIHISTAMINES [Concomitant]
     Route: 065
  30. ANTIHISTAMINES [Concomitant]
     Route: 065
  31. ANTIHISTAMINES [Concomitant]
     Route: 065
  32. ANTIHISTAMINES [Concomitant]
     Indication: PROPHYLAXIS
     Route: 065
  33. ANTIHISTAMINES [Concomitant]
     Indication: RHEUMATOID ARTHRITIS
     Route: 065
  34. INTEBAN [Concomitant]
     Indication: RHEUMATOID ARTHRITIS
     Route: 054
  35. FOLIAMIN [Concomitant]
     Indication: PROPHYLAXIS
     Route: 048
  36. ALENDRONATE SODIUM [Concomitant]
     Indication: OSTEOPOROSIS
     Route: 048
  37. ALFAROL [Concomitant]
     Indication: OSTEOPOROSIS
     Dosage: 0.5RG
     Route: 048
  38. GASTER D [Concomitant]
     Indication: PROPHYLAXIS
     Route: 048
  39. CALCIUM LACTATE [Concomitant]
     Indication: OSTEOPOROSIS
     Route: 048
  40. AZULENE SULFONATE SODIUM [Concomitant]
     Indication: PROPHYLAXIS
     Route: 048
  41. DEPAS [Concomitant]
     Indication: INSOMNIA
     Route: 048
  42. MAGNESIUM OXIDE [Concomitant]
     Indication: CONSTIPATION
  43. ADRENAL HORMONE PREPARATIONS [Concomitant]
     Indication: RHEUMATOID ARTHRITIS
     Route: 065

REACTIONS (1)
  - HERPES ZOSTER [None]
